FAERS Safety Report 5365379-5 (Version None)
Quarter: 2007Q2

REPORT INFORMATION
  Report Type: 
  Country: None (occurrence: None)
  Receive Date: 20070530
  Receipt Date: 20070115
  Transmission Date: 20071010
  Serious: No
  Sender: FDA-Public Use
  Company Number: 2007PV028441

PATIENT
  Age: 65 Year
  Sex: Male
  Weight: 107.0489 kg

DRUGS (5)
  1. BYETTA [Suspect]
     Indication: DIABETES MELLITUS NON-INSULIN-DEPENDENT
     Dosage: 10 MCG;BID;SC 5 MCG;BID;SC
     Route: 058
     Dates: start: 20061107, end: 20061201
  2. BYETTA [Suspect]
     Indication: DIABETES MELLITUS NON-INSULIN-DEPENDENT
     Dosage: 10 MCG;BID;SC 5 MCG;BID;SC
     Route: 058
     Dates: start: 20061201
  3. HUMALOG [Concomitant]
  4. METFORMIN HCL [Concomitant]
  5. METROPROLOL [Concomitant]

REACTIONS (3)
  - CONDITION AGGRAVATED [None]
  - LUNG NEOPLASM [None]
  - WEIGHT DECREASED [None]
